FAERS Safety Report 4586271-X (Version None)
Quarter: 2005Q1

REPORT INFORMATION
  Report Type: 
  Country: None (occurrence: None)
  Receive Date: 20050125
  Receipt Date: 20041020
  Transmission Date: 20050727
  Serious: No
  Sender: FDA-Public Use
  Company Number: USA041081759

PATIENT
  Age: 60 Year
  Sex: Female
  Weight: 68 kg

DRUGS (8)
  1. FORTEO [Suspect]
     Indication: OSTEOPOROSIS
     Dosage: 20 UG/1 DAY
     Dates: start: 20040501
  2. CELEBREX [Concomitant]
  3. SYNTHROID [Concomitant]
  4. WELLBUTRIN - SLOW RELEASE (BUPRION HYDROCHLORIDE ) [Concomitant]
  5. GLUCOSAMINE CHONDROITIN [Concomitant]
  6. CALCIUM GLUCONATE [Concomitant]
  7. XANAX (ALPRAZOLAM DUM) [Concomitant]
  8. ZANAFLEX [Concomitant]

REACTIONS (1)
  - BONE PAIN [None]
